FAERS Safety Report 14828638 (Version 2)
Quarter: 2018Q3

REPORT INFORMATION
  Report Type: Report from Study
  Country: US (occurrence: US)
  Receive Date: 20180430
  Receipt Date: 20180829
  Transmission Date: 20181010
  Serious: Yes (Other)
  Sender: FDA-Public Use
  Company Number: PHEH2018US015163

PATIENT
  Sex: Female

DRUGS (1)
  1. ENTRESTO [Suspect]
     Active Substance: SACUBITRIL\VALSARTAN
     Indication: CARDIAC FAILURE
     Dosage: 1 DF (49/51MG), BID
     Route: 048

REACTIONS (15)
  - Wheezing [Unknown]
  - Diabetes mellitus [Unknown]
  - Weight increased [Unknown]
  - Drug intolerance [Unknown]
  - Blood glucose increased [Unknown]
  - Glycosylated haemoglobin increased [Unknown]
  - Disorientation [Unknown]
  - Limb discomfort [Unknown]
  - Dyspnoea [Unknown]
  - Hypertension [Unknown]
  - Diarrhoea [Unknown]
  - Vomiting [Unknown]
  - Feeling abnormal [Unknown]
  - Abdominal discomfort [Unknown]
  - Malaise [Unknown]
